FAERS Safety Report 10614341 (Version 3)
Quarter: 2015Q1

REPORT INFORMATION
  Report Type: Report from Study
  Country: US (occurrence: US)
  Receive Date: 20141128
  Receipt Date: 20150101
  Transmission Date: 20150720
  Serious: Yes (Other)
  Sender: FDA-Public Use
  Company Number: PHEH2014US023704

PATIENT
  Age: 26 Year
  Sex: Male

DRUGS (2)
  1. DILANTIN [Concomitant]
     Active Substance: PHENYTOIN
     Indication: PRODUCT USED FOR UNKNOWN INDICATION
     Route: 065
  2. TEGRETOL [Suspect]
     Active Substance: CARBAMAZEPINE
     Indication: SEIZURE
     Dosage: 2 DF (200 MG), BID
     Route: 048

REACTIONS (4)
  - Fall [Unknown]
  - Neck injury [Unknown]
  - Generalised tonic-clonic seizure [Unknown]
  - Paralysis [Unknown]

NARRATIVE: CASE EVENT DATE: 20120703
